FAERS Safety Report 13004498 (Version 2)
Quarter: 2016Q4

REPORT INFORMATION
  Report Type: Spontaneous
  Country: JP (occurrence: JP)
  Receive Date: 20161207
  Receipt Date: 20161229
  Transmission Date: 20170207
  Serious: Yes (Hospitalization, Other)
  Sender: FDA-Public Use
  Company Number: JP-TAKEDA-2016TJP025961

PATIENT
  Age: 74 Year
  Sex: Female

DRUGS (2)
  1. ACTOS [Suspect]
     Active Substance: PIOGLITAZONE HYDROCHLORIDE
     Indication: TYPE 2 DIABETES MELLITUS
     Dosage: 15 MG, UNK
     Route: 048
  2. EUGLUCON [Concomitant]
     Active Substance: GLYBURIDE
     Dosage: UNK
     Route: 048

REACTIONS (4)
  - Hypoglycaemia [Unknown]
  - Femoral neck fracture [Unknown]
  - Fall [Recovered/Resolved]
  - Gastroenteritis [Unknown]
